FAERS Safety Report 7748156-7 (Version None)
Quarter: 2011Q3

REPORT INFORMATION
  Report Type: 
  Country: None (occurrence: None)
  Receive Date: 20110913
  Receipt Date: 20110829
  Transmission Date: 20111222
  Serious: Yes (Hospitalization)
  Sender: FDA-Public Use
  Company Number: TW-WATSON-2011-14377

PATIENT
  Age: 46 Year
  Sex: Female

DRUGS (1)
  1. ZOLPIDEM TARTRATE [Suspect]
     Indication: PRODUCT USED FOR UNKNOWN INDICATION
     Dosage: 400 MG, DAILY (MAXIMAL DAILY DOSE IN DIVIDED DOSES)
     Route: 065

REACTIONS (9)
  - PSYCHOTIC BEHAVIOUR [None]
  - MUSCLE TWITCHING [None]
  - DRUG DEPENDENCE [None]
  - DYSKINESIA [None]
  - DYSARTHRIA [None]
  - TACHYCARDIA [None]
  - WITHDRAWAL SYNDROME [None]
  - DRUG ABUSE [None]
  - HALLUCINATION, VISUAL [None]
